FAERS Safety Report 8379359-9 (Version None)
Quarter: 2012Q1

REPORT INFORMATION
  Report Type: 
  Country: None (occurrence: None)
  Receive Date: 20120323
  Receipt Date: 20111201
  Transmission Date: 20120608
  Serious: Yes (Other)
  Sender: FDA-Public Use
  Company Number: 163-21880-11042435

PATIENT
  Age: 80 Year
  Sex: Female
  Weight: 66.9 kg

DRUGS (4)
  1. REVLIMID [Suspect]
     Indication: MULTIPLE MYELOMA
     Dosage: 5 MG, 1 IN 1 D, PO; 10 MG, 1 IN 1 D, PO; 5 MG, DAILY FOR 21/28 DAYS, PO; 10 MG, DAILY FOR 21/28 DAYS
     Route: 048
     Dates: start: 20110601, end: 20111201
  2. REVLIMID [Suspect]
     Indication: MULTIPLE MYELOMA
     Dosage: 5 MG, 1 IN 1 D, PO; 10 MG, 1 IN 1 D, PO; 5 MG, DAILY FOR 21/28 DAYS, PO; 10 MG, DAILY FOR 21/28 DAYS
     Route: 048
     Dates: start: 20110209, end: 20110501
  3. REVLIMID [Suspect]
     Indication: MULTIPLE MYELOMA
     Dosage: 5 MG, 1 IN 1 D, PO; 10 MG, 1 IN 1 D, PO; 5 MG, DAILY FOR 21/28 DAYS, PO; 10 MG, DAILY FOR 21/28 DAYS
     Route: 048
     Dates: start: 20111201
  4. REVLIMID [Suspect]
     Indication: MULTIPLE MYELOMA
     Dosage: 5 MG, 1 IN 1 D, PO; 10 MG, 1 IN 1 D, PO; 5 MG, DAILY FOR 21/28 DAYS, PO; 10 MG, DAILY FOR 21/28 DAYS
     Route: 048
     Dates: start: 20110501, end: 20110601

REACTIONS (4)
  - ANAEMIA [None]
  - FATIGUE [None]
  - WHITE BLOOD CELL COUNT DECREASED [None]
  - FULL BLOOD COUNT DECREASED [None]
